FAERS Safety Report 17224785 (Version 2)
Quarter: 2020Q1

REPORT INFORMATION
  Report Type: Report from Study
  Country: BR (occurrence: BR)
  Receive Date: 20200102
  Receipt Date: 20200207
  Transmission Date: 20200409
  Serious: Yes (Other)
  Sender: FDA-Public Use
  Company Number: PHHY2019BR202436

PATIENT
  Age: 47 Year
  Sex: Female
  Weight: 80 kg

DRUGS (3)
  1. SANDOSTATIN LAR DEPOT [Suspect]
     Active Substance: OCTREOTIDE ACETATE
     Indication: ACROMEGALY
     Dosage: 30 MG, UNK
     Route: 065
     Dates: start: 2011, end: 20190822
  2. CABERGOLINE. [Suspect]
     Active Substance: CABERGOLINE
     Indication: ACROMEGALY
     Dosage: UNK, Q2W (01 TABLET)
     Route: 048
     Dates: start: 201003
  3. SANDOSTATIN LAR DEPOT [Suspect]
     Active Substance: OCTREOTIDE ACETATE
     Dosage: 30 MG, QMO
     Route: 030
     Dates: start: 201205

REACTIONS (9)
  - Needle issue [Unknown]
  - Injection site pain [Recovering/Resolving]
  - Pyrexia [Recovered/Resolved]
  - Nasopharyngitis [Unknown]
  - Anxiety [Unknown]
  - Abscess limb [Unknown]
  - Injection site mass [Recovering/Resolving]
  - Abscess limb [Recovered/Resolved]
  - Injection site infection [Recovering/Resolving]

NARRATIVE: CASE EVENT DATE: 201605
